FAERS Safety Report 17760581 (Version 9)
Quarter: 2024Q2

REPORT INFORMATION
  Report Type: Spontaneous
  Country: US (occurrence: US)
  Receive Date: 20200508
  Receipt Date: 20240621
  Transmission Date: 20240715
  Serious: Yes (Other)
  Sender: FDA-Public Use
  Company Number: US-PFIZER INC-2020184252

PATIENT
  Age: 76 Year
  Sex: Female
  Weight: 76.201 kg

DRUGS (5)
  1. XELJANZ XR [Suspect]
     Active Substance: TOFACITINIB CITRATE
     Indication: Rheumatoid arthritis
     Dosage: 11 MG, 1X/DAY
     Route: 048
     Dates: start: 2016, end: 202406
  2. DIAZEPAM [Concomitant]
     Active Substance: DIAZEPAM
     Dosage: UNK
  3. FAMOTIDINE [Concomitant]
     Active Substance: FAMOTIDINE
     Dosage: UNK
  4. LISINOPRIL [Concomitant]
     Active Substance: LISINOPRIL
     Indication: Blood pressure measurement
     Dosage: UNK
  5. RECLAST [Concomitant]
     Active Substance: ZOLEDRONIC ACID
     Indication: Osteoporosis
     Dosage: UNK, (EVERY 2 YEARS )

REACTIONS (18)
  - Spinal compression fracture [Unknown]
  - Neoplasm malignant [Unknown]
  - Skin cancer [Unknown]
  - Vaginal cancer [Unknown]
  - Back pain [Unknown]
  - Fall [Unknown]
  - Knee operation [Unknown]
  - Nerve injury [Not Recovered/Not Resolved]
  - Precancerous skin lesion [Unknown]
  - Urinary tract infection [Unknown]
  - Bladder disorder [Unknown]
  - Hypersensitivity [Unknown]
  - Electric shock sensation [Unknown]
  - Bed bug infestation [Unknown]
  - Pruritus [Unknown]
  - Rash [Unknown]
  - Weight decreased [Not Recovered/Not Resolved]
  - Incorrect dose administered [Unknown]

NARRATIVE: CASE EVENT DATE: 20210211
